FAERS Safety Report 5893906-8 (Version None)
Quarter: 2008Q3

REPORT INFORMATION
  Report Type: 
  Country: None (occurrence: None)
  Receive Date: 20080923
  Receipt Date: 20071207
  Transmission Date: 20090109
  Serious: No
  Sender: FDA-Public Use
  Company Number: US-ASTRAZENECA-2007UW27953

PATIENT
  Age: 18 Year
  Sex: Female

DRUGS (4)
  1. SEROQUEL [Suspect]
     Indication: BIPOLAR I DISORDER
     Route: 048
     Dates: start: 20070601
  2. SEROQUEL [Suspect]
     Route: 048
  3. LITHIUM CARBONATE [Concomitant]
  4. TRILEPTAL [Concomitant]

REACTIONS (5)
  - AKATHISIA [None]
  - DRUG INEFFECTIVE [None]
  - FLIGHT OF IDEAS [None]
  - MANIA [None]
  - SEDATION [None]
